FAERS Safety Report 14805321 (Version 1)
Quarter: 2018Q2

REPORT INFORMATION
  Report Type: Other
  Country: NO (occurrence: NO)
  Receive Date: 20180425
  Receipt Date: 20180425
  Transmission Date: 20180711
  Serious: Yes (Hospitalization, Other)
  Sender: FDA-Public Use
  Company Number: NO-CELLTRION INC.-2018NO019366

PATIENT

DRUGS (4)
  1. INFLIXIMAB (UNKNOWN) [Suspect]
     Active Substance: INFLIXIMAB
     Indication: CROHN^S DISEASE
     Dosage: 300 MG, 8 WEEKS
     Route: 042
     Dates: start: 201606, end: 201606
  2. INFLIXIMAB (UNKNOWN) [Suspect]
     Active Substance: INFLIXIMAB
     Dosage: 300 MG, 8 WEEKS
     Route: 042
     Dates: start: 201707, end: 201707
  3. METHOTREXATE. [Concomitant]
     Active Substance: METHOTREXATE
     Indication: PSORIASIS
     Dosage: 2.5 MG
     Route: 048
     Dates: start: 201708
  4. METHOTREXATE. [Concomitant]
     Active Substance: METHOTREXATE
     Indication: ERYTHEMA NODOSUM

REACTIONS (1)
  - Astrocytoma malignant [Recovering/Resolving]

NARRATIVE: CASE EVENT DATE: 201708
